FAERS Safety Report 11415411 (Version 3)
Quarter: 2015Q3

REPORT INFORMATION
  Report Type: Report from Study
  Country: BR (occurrence: BR)
  Receive Date: 20150825
  Receipt Date: 20150907
  Transmission Date: 20151125
  Serious: Yes (Hospitalization, Other)
  Sender: FDA-Public Use
  Company Number: PHHY2015BR100561

PATIENT
  Sex: Male
  Weight: 78 kg

DRUGS (4)
  1. SIMVASTATIN. [Suspect]
     Active Substance: SIMVASTATIN
     Indication: BLOOD CHOLESTEROL ABNORMAL
     Dosage: 1 DF, QD
     Route: 065
  2. INSULIN [Suspect]
     Active Substance: INSULIN NOS
     Indication: DIABETES MELLITUS
     Dosage: 38 OT (30 IN THE MORNING AND 8 AT NIGHT), BID
     Route: 065
  3. DIGOXIN. [Suspect]
     Active Substance: DIGOXIN
     Indication: CARDIAC DISORDER
     Dosage: 1 DF, QD
     Route: 065
  4. ONBREZ [Suspect]
     Active Substance: INDACATEROL
     Indication: EMPHYSEMA
     Dosage: 300 UG, BID, IN THE MORNING AND AT NIGHT
     Route: 065
     Dates: start: 2005

REACTIONS (4)
  - Congestive cardiomyopathy [Unknown]
  - Myocardial infarction [Unknown]
  - Condition aggravated [Unknown]
  - Chest pain [Unknown]
